FAERS Safety Report 15785456 (Version 1)
Quarter: 2019Q1

REPORT INFORMATION
  Report Type: Spontaneous
  Country: US (occurrence: US)
  Receive Date: 20190101
  Receipt Date: 20190101
  Transmission Date: 20190417
  Serious: Yes (Other)
  Sender: FDA-Public Use
  Company Number: None

PATIENT
  Age: 7 Year
  Sex: Female
  Weight: 19.8 kg

DRUGS (7)
  1. CLOBAZAM. [Suspect]
     Active Substance: CLOBAZAM
     Indication: EPILEPSY
     Dosage: ?          QUANTITY:2 DROP(S);?
     Route: 048
     Dates: start: 20181212
  2. DIAZEPAM. [Concomitant]
     Active Substance: DIAZEPAM
  3. MELATONIN [Concomitant]
     Active Substance: MELATONIN
  4. FELBAMATE. [Concomitant]
     Active Substance: FELBAMATE
  5. MEGACE [Concomitant]
     Active Substance: MEGESTROL ACETATE
  6. DEPAKOTE [Concomitant]
     Active Substance: DIVALPROEX SODIUM
  7. CLOBAZAM. [Concomitant]
     Active Substance: CLOBAZAM

REACTIONS (5)
  - Condition aggravated [None]
  - Therapeutic response changed [None]
  - Seizure [None]
  - Vomiting [None]
  - Nausea [None]
